FAERS Safety Report 15297573 (Version 4)
Quarter: 2018Q4

REPORT INFORMATION
  Report Type: Report from Study
  Country: EG (occurrence: EG)
  Receive Date: 20180820
  Receipt Date: 20181012
  Transmission Date: 20190204
  Serious: Yes (Death, Hospitalization, Other)
  Sender: FDA-Public Use
  Company Number: EG-SEATTLE GENETICS-2018SGN01999

PATIENT
  Sex: Female

DRUGS (1)
  1. BRENTUXIMAB VEDOTIN-MPI [Suspect]
     Active Substance: BRENTUXIMAB VEDOTIN
     Indication: HODGKIN^S DISEASE
     Dosage: UNK
     Route: 042
     Dates: start: 20180627, end: 20180818

REACTIONS (10)
  - Haematemesis [Unknown]
  - Status epilepticus [Unknown]
  - Confusional state [Unknown]
  - Pyrexia [Unknown]
  - Circulatory collapse [Fatal]
  - Tremor [Unknown]
  - Brain oedema [Unknown]
  - Eye movement disorder [Unknown]
  - Pancytopenia [Unknown]
  - Vomiting [Unknown]
